FAERS Safety Report 6716524-8 (Version None)
Quarter: 2010Q2

REPORT INFORMATION
  Report Type: 
  Country: None (occurrence: None)
  Receive Date: 20100507
  Receipt Date: 20100427
  Transmission Date: 20101027
  Serious: Yes (Hospitalization)
  Sender: FDA-Public Use
  Company Number: ES-ELI_LILLY_AND_COMPANY-ES201004007453

PATIENT
  Sex: Female

DRUGS (13)
  1. FORTEO [Suspect]
     Indication: OSTEOPOROSIS
     Dosage: 20 UG, DAILY (1/D)
     Route: 058
     Dates: start: 20090303
  2. IDEOS                              /00944201/ [Concomitant]
     Indication: OSTEOPOROSIS
     Dosage: UNK, DAILY (1/D)
     Route: 048
     Dates: start: 20100226
  3. SINTROM [Concomitant]
     Indication: THROMBOSIS
     Dosage: 4 MG, DAILY (1/D)
     Route: 048
  4. ASPIRIN [Concomitant]
     Indication: MYOCARDIAL INFARCTION
     Dosage: 150 MG, DAILY (1/D)
     Route: 048
  5. LEXATIN [Concomitant]
     Indication: ANXIETY
     Dosage: 1.5 MG, DAILY (1/D)
     Route: 048
  6. ZOCOR [Concomitant]
     Indication: HYPERCHOLESTEROLAEMIA
     Dosage: 20 MG, DAILY (1/D)
     Route: 048
  7. METOJECT [Concomitant]
     Indication: RHEUMATOID ARTHRITIS
     Dosage: 10 MG, WEEKLY (1/W)
     Route: 058
  8. ACFOL [Concomitant]
     Dosage: 10 MG, WEEKLY (1/W)
     Route: 048
  9. DACORTIN [Concomitant]
     Indication: RHEUMATOID ARTHRITIS
     Dosage: 5 MG, WEEKLY (1/W)
     Route: 048
  10. ESERTIA [Concomitant]
     Dosage: 15 MG, WEEKLY (1/W)
     Route: 048
  11. PANTECTA [Concomitant]
     Dosage: 20 MG, DAILY (1/D)
     Route: 048
  12. TENORMIN [Concomitant]
     Indication: HYPERTENSION
     Dosage: 50 MG, DAILY (1/D)
     Route: 048
  13. MINITRAN /00003201/ [Concomitant]
     Dosage: 10 MG, DAILY (1/D)
     Route: 062

REACTIONS (2)
  - ARTHRALGIA [None]
  - TIBIA FRACTURE [None]
